FAERS Safety Report 4753628-3 (Version None)
Quarter: 2005Q3

REPORT INFORMATION
  Report Type: 
  Country: None (occurrence: None)
  Receive Date: 20050826
  Receipt Date: 20050818
  Transmission Date: 20060218
  Serious: Yes (Hospitalization)
  Sender: FDA-Public Use
  Company Number: DE-JNJFOC-20050804348

PATIENT
  Sex: Male

DRUGS (12)
  1. DURAGESIC-100 [Suspect]
     Indication: THORACIC VERTEBRAL FRACTURE
     Route: 062
  2. VIGANTOLETTEN 500 [Concomitant]
     Route: 065
  3. DECORTIN [Concomitant]
     Route: 065
  4. NEXIUM [Concomitant]
     Route: 065
  5. CITALOPRAM [Concomitant]
     Route: 065
  6. LASIX [Concomitant]
     Route: 065
  7. BRONCHORETARD [Concomitant]
     Route: 065
  8. SPIRIVA [Concomitant]
     Route: 065
  9. FORADIL [Concomitant]
     Route: 065
  10. SYMBICORT [Concomitant]
     Route: 065
  11. SYMBICORT [Concomitant]
     Route: 065
  12. NOVAMINSULFON [Concomitant]
     Route: 065

REACTIONS (3)
  - NAUSEA [None]
  - SUICIDAL IDEATION [None]
  - VOMITING [None]
